FAERS Safety Report 5587301-9 (Version None)
Quarter: 2008Q1

REPORT INFORMATION
  Report Type: 
  Country: None (occurrence: None)
  Receive Date: 20080110
  Receipt Date: 20080102
  Transmission Date: 20080703
  Serious: Yes (Hospitalization)
  Sender: FDA-Public Use
  Company Number: AU-PURDUE-USA_2008_0030945

PATIENT
  Age: 52 Year
  Sex: Female

DRUGS (9)
  1. OXYCONTIN [Suspect]
     Indication: EYE PAIN
     Dosage: 40 MG, DAILY
     Route: 048
  2. METFORMIN HCL [Concomitant]
     Indication: DRUG USE FOR UNKNOWN INDICATION
     Route: 065
  3. GLYBURIDE [Concomitant]
     Indication: DRUG USE FOR UNKNOWN INDICATION
     Route: 065
  4. SIMVASTATIN [Concomitant]
     Indication: DRUG USE FOR UNKNOWN INDICATION
     Route: 065
  5. RAMIPRIL [Concomitant]
     Indication: DRUG USE FOR UNKNOWN INDICATION
     Route: 065
  6. ACYCLOVIR [Concomitant]
     Indication: HERPES ZOSTER OPHTHALMIC
     Route: 047
  7. ENDONE [Concomitant]
     Indication: EYE PAIN
     Route: 065
  8. LIDOCAINE [Concomitant]
     Indication: DRUG USE FOR UNKNOWN INDICATION
     Dosage: UNK, SEE TEXT
     Route: 042
  9. MORPHINE [Concomitant]
     Indication: DRUG USE FOR UNKNOWN INDICATION
     Dosage: UNK, SEE TEXT
     Route: 051

REACTIONS (9)
  - CARDIAC ARREST [None]
  - DRUG INEFFECTIVE [None]
  - EYE PAIN [None]
  - FACIAL PAIN [None]
  - HYPOTENSION [None]
  - LOSS OF CONSCIOUSNESS [None]
  - RESPIRATORY FAILURE [None]
  - SOMNOLENCE [None]
  - STUPOR [None]
